FAERS Safety Report 21817440 (Version 2)
Quarter: 2023Q1

REPORT INFORMATION
  Report Type: Other
  Country: US (occurrence: None)
  Receive Date: 20230104
  Receipt Date: 20230106
  Transmission Date: 20230418
  Serious: Yes (Death)
  Sender: FDA-Public Use
  Company Number: US-ROCHE-3256127

PATIENT
  Age: 84 Year
  Sex: Male

DRUGS (1)
  1. CELLCEPT [Suspect]
     Active Substance: MYCOPHENOLATE MOFETIL
     Indication: Interstitial lung disease
     Route: 065

REACTIONS (4)
  - Off label use [Unknown]
  - COVID-19 [Fatal]
  - Pneumonia [Fatal]
  - Interstitial lung disease [Fatal]
